FAERS Safety Report 25922778 (Version 1)
Quarter: 2025Q4

REPORT INFORMATION
  Report Type: Spontaneous
  Country: EU (occurrence: EU)
  Receive Date: 20251015
  Receipt Date: 20251015
  Transmission Date: 20260119
  Serious: Yes (Death, Hospitalization, Other)
  Sender: BIOVITRUM
  Company Number: EU-BIOVITRUM-2025-ES-014061

PATIENT
  Age: 82 Year
  Sex: Female

DRUGS (1)
  1. AVATROMBOPAG [Suspect]
     Active Substance: AVATROMBOPAG
     Indication: Product used for unknown indication

REACTIONS (2)
  - Cerebrovascular accident [Unknown]
  - Acute kidney injury [Fatal]
